FAERS Safety Report 4528333-9 (Version None)
Quarter: 2004Q4

REPORT INFORMATION
  Report Type: 
  Country: None (occurrence: None)
  Receive Date: 20041130
  Receipt Date: 20040811
  Transmission Date: 20050328
  Serious: No
  Sender: FDA-Public Use
  Company Number: WAES 0408USA01048

PATIENT
  Sex: Male

DRUGS (8)
  1. ZETIA [Suspect]
     Dosage: 10 MG PO
     Route: 048
     Dates: start: 20040501
  2. ALTACE [Concomitant]
  3. ZOCOR [Concomitant]
  4. UBIDECARENONE [Concomitant]
  5. VITAMIN A [Concomitant]
  6. VITAMIN E [Concomitant]
  7. MULTIVITAMIN [Concomitant]
  8. XANTHOPHYLL [Concomitant]

REACTIONS (1)
  - FAECES DISCOLOURED [None]
